FAERS Safety Report 22188706 (Version 1)
Quarter: 2023Q2

REPORT INFORMATION
  Report Type: Report from Study
  Country: US (occurrence: US)
  Receive Date: 20230409
  Receipt Date: 20230409
  Transmission Date: 20230721
  Serious: Yes (Hospitalization)
  Sender: FDA-Public Use
  Company Number: US-002147023-NVSC2023US079502

PATIENT
  Age: 51 Year
  Sex: Female
  Weight: 78 kg

DRUGS (13)
  1. FULVESTRANT [Suspect]
     Active Substance: FULVESTRANT
     Indication: Breast cancer metastatic
     Dosage: 500 MG X3, Q2W
     Route: 030
     Dates: start: 20230124, end: 20230124
  2. ZOMETA [Suspect]
     Active Substance: ZOLEDRONIC ACID
     Indication: Metastases to bone
     Dosage: 4 MG, Q4W
     Route: 065
     Dates: start: 20230130
  3. HYDROCODONE BITARTRATE AND ACETAMINOPHEN [Concomitant]
     Active Substance: ACETAMINOPHEN\HYDROCODONE BITARTRATE
     Indication: Bone pain
     Dosage: 5-325 MG, AS NECESSARY
     Route: 065
     Dates: start: 20230124
  4. NUVIGIL [Concomitant]
     Active Substance: ARMODAFINIL
     Indication: Insomnia
     Dosage: 150 MG, QD
     Route: 065
     Dates: start: 202212
  5. METHOCARBAMOL [Concomitant]
     Active Substance: METHOCARBAMOL
     Indication: Muscle relaxant therapy
     Dosage: 500 MG, PRN
     Route: 065
     Dates: start: 202207
  6. CYCLOBENZAPRINE [Concomitant]
     Active Substance: CYCLOBENZAPRINE
     Indication: Muscle relaxant therapy
     Dosage: 10 MG, PRN
     Route: 065
     Dates: start: 2022
  7. VENLAFAXINE [Concomitant]
     Active Substance: VENLAFAXINE HYDROCHLORIDE
     Indication: Anxiety
     Dosage: 150 MG, QD
     Route: 065
     Dates: start: 2013
  8. ALBUTEROL [Concomitant]
     Active Substance: ALBUTEROL
     Indication: Cough
     Dosage: 90 UG, PRN
     Route: 065
     Dates: start: 20221114
  9. BUPROPION [Concomitant]
     Active Substance: BUPROPION
     Indication: Anxiety
     Dosage: 150 MG, QD
     Route: 065
     Dates: start: 2021
  10. GABAPENTIN AL [Concomitant]
     Indication: Bone pain
     Dosage: 300 MG, QD
     Route: 065
     Dates: start: 2018
  11. LISINOPRIL [Concomitant]
     Active Substance: LISINOPRIL
     Indication: Hypertension
     Dosage: 20 MG, QD
     Route: 065
     Dates: start: 2021
  12. HYDROXYZINE HYDROCHLORIDE [Concomitant]
     Active Substance: HYDROXYZINE HYDROCHLORIDE
     Indication: Anxiety
     Dosage: 25 MG, PRN
     Route: 065
     Dates: start: 20220727
  13. FLUTICASONE PROPIONATE [Concomitant]
     Active Substance: FLUTICASONE PROPIONATE
     Indication: Seasonal allergy
     Dosage: 50 UG, PRN
     Route: 065
     Dates: start: 2021

REACTIONS (4)
  - Blood lactic acid increased [Unknown]
  - Pyrexia [Recovered/Resolved]
  - Nausea [Unknown]
  - Fatigue [Unknown]

NARRATIVE: CASE EVENT DATE: 20230131
